FAERS Safety Report 18531965 (Version 1)
Quarter: 2020Q4

REPORT INFORMATION
  Report Type: Report from Study
  Country: RO (occurrence: RO)
  Receive Date: 20201123
  Receipt Date: 20201123
  Transmission Date: 20210114
  Serious: Yes (Death)
  Sender: FDA-Public Use
  Company Number: RO-ROCHE-2627942

PATIENT
  Age: 57 Year
  Sex: Male
  Weight: 110 kg

DRUGS (4)
  1. METFORMINUM [Concomitant]
     Indication: DIABETES MELLITUS
     Route: 048
     Dates: start: 201307
  2. FUROSEMIDUM [Concomitant]
     Active Substance: FUROSEMIDE
     Indication: OEDEMA PERIPHERAL
     Route: 048
     Dates: start: 20200423
  3. ZOLEDRONIC ACID. [Concomitant]
     Active Substance: ZOLEDRONIC ACID
     Indication: METASTASES TO BONE
     Route: 042
     Dates: start: 20140423
  4. ATEZOLIZUMAB. [Suspect]
     Active Substance: ATEZOLIZUMAB
     Indication: BLADDER CANCER
     Dosage: ON 14/MAY/2020, THE PATIENT RECEIVED MOST RECENT DOSE OF ATEZOLIZUMAB PRIOR TO ONSET OF AE AT THE DO
     Route: 041
     Dates: start: 20181011

REACTIONS (1)
  - Disease progression [Fatal]

NARRATIVE: CASE EVENT DATE: 20200604
